FAERS Safety Report 24456932 (Version 1)
Quarter: 2024Q4

REPORT INFORMATION
  Report Type: Spontaneous
  Country: US (occurrence: US)
  Receive Date: 20241018
  Receipt Date: 20241018
  Transmission Date: 20250115
  Serious: Yes (Other)
  Sender: ACCORD
  Company Number: US-Accord-450833

PATIENT
  Sex: Female

DRUGS (1)
  1. METHYLPHENIDATE HYDROCHLORIDE [Suspect]
     Active Substance: METHYLPHENIDATE HYDROCHLORIDE
     Indication: Attention deficit hyperactivity disorder
     Dates: start: 202403

REACTIONS (11)
  - Illness [Unknown]
  - Cachexia [Unknown]
  - Alopecia [Recovered/Resolved]
  - Asthenia [Unknown]
  - Lethargy [Unknown]
  - Renal pain [Unknown]
  - Chromaturia [Unknown]
  - Urine abnormality [Unknown]
  - Arthralgia [Unknown]
  - Dry eye [Unknown]
  - Peripheral coldness [Unknown]
